FAERS Safety Report 17524954 (Version 1)
Quarter: 2020Q1

REPORT INFORMATION
  Report Type: Spontaneous
  Country: GB (occurrence: GB)
  Receive Date: 20200310
  Receipt Date: 20200310
  Transmission Date: 20200409
  Serious: Yes (Disabling, Other)
  Sender: FDA-Public Use
  Company Number: PHHY2019GB179830

PATIENT
  Age: 50 Year
  Sex: Male
  Weight: 95 kg

DRUGS (3)
  1. ALLOPURINOL. [Suspect]
     Active Substance: ALLOPURINOL
     Indication: GOUT
     Dosage: 300 MG, UNKNOWN
     Route: 048
     Dates: start: 19990701, end: 20190701
  2. OMEPRAZOLE SANDOZ [Suspect]
     Active Substance: OMEPRAZOLE
     Indication: GOUT
     Dosage: 20 MG, UNKNOWN
     Route: 048
     Dates: start: 20070404, end: 20190701
  3. ALLOPURINOL. [Suspect]
     Active Substance: ALLOPURINOL
     Dosage: 300 MG, UNKNOWN
     Route: 048
     Dates: start: 19990701, end: 20190701

REACTIONS (8)
  - Fatigue [Unknown]
  - Dizziness [Unknown]
  - Eosinophil count increased [Unknown]
  - Erythema multiforme [Recovering/Resolving]
  - Eye disorder [Unknown]
  - Drug reaction with eosinophilia and systemic symptoms [Recovering/Resolving]
  - Hypertension [Unknown]
  - Product substitution issue [Unknown]

NARRATIVE: CASE EVENT DATE: 20190624
